FAERS Safety Report 7539296-6 (Version None)
Quarter: 2011Q2

REPORT INFORMATION
  Report Type: 
  Country: None (occurrence: None)
  Receive Date: 20110610
  Receipt Date: 20110603
  Transmission Date: 20111010
  Serious: Yes (Hospitalization)
  Sender: FDA-Public Use
  Company Number: US-B.I. PHARMACEUTICALS,INC./RIDGEFIELD-2011-BP-05776BP

PATIENT
  Sex: Female

DRUGS (12)
  1. ATENOLOL [Concomitant]
     Indication: CARDIAC DISORDER
     Dosage: 50 MG
     Route: 048
     Dates: start: 20000101
  2. ASPIRIN [Concomitant]
     Indication: PROPHYLAXIS
     Dosage: 81 MG
     Route: 048
     Dates: start: 20000101
  3. LOSARTAN POTASSIUM [Concomitant]
     Indication: CARDIAC VALVE DISEASE
     Dosage: 25 MG
     Route: 048
     Dates: start: 20000101
  4. MECLIZINE [Concomitant]
     Indication: VERTIGO
     Dosage: 25 MG
     Route: 048
     Dates: start: 19800101
  5. SYMBICORT [Concomitant]
     Indication: CHRONIC OBSTRUCTIVE PULMONARY DISEASE
     Dosage: 4 PUFFS
     Route: 055
     Dates: start: 20100401
  6. PRILOSEC [Concomitant]
     Indication: ABDOMINAL DISCOMFORT
     Dosage: 1 TAB
     Route: 048
     Dates: start: 19900101
  7. SPIRIVA [Suspect]
     Indication: CHRONIC OBSTRUCTIVE PULMONARY DISEASE
     Dosage: 18 MCG
     Route: 055
     Dates: start: 20101201
  8. TRIAVIL [Concomitant]
     Indication: NERVE INJURY
     Dosage: 2.25 MG
     Route: 048
     Dates: start: 19900101
  9. PRILOSEC [Concomitant]
     Indication: DYSPEPSIA
  10. ASPIRIN [Concomitant]
     Indication: CARDIAC DISORDER
  11. LOSARTAN POTASSIUM [Concomitant]
     Indication: CARDIAC DISORDER
  12. XANAX [Concomitant]
     Indication: ANXIETY
     Dosage: 5 MG
     Route: 048
     Dates: start: 19900101

REACTIONS (8)
  - GROIN PAIN [None]
  - NAUSEA [None]
  - LIMB DISCOMFORT [None]
  - MUSCULOSKELETAL PAIN [None]
  - RHEUMATOID ARTHRITIS [None]
  - CHEST PAIN [None]
  - ARTHRALGIA [None]
  - VOMITING [None]
